FAERS Safety Report 23809874 (Version 1)
Quarter: 2024Q2

REPORT INFORMATION
  Report Type: Spontaneous
  Country: FR (occurrence: FR)
  Receive Date: 20240502
  Receipt Date: 20240502
  Transmission Date: 20240716
  Serious: Yes (Other)
  Sender: FDA-Public Use
  Company Number: None

PATIENT
  Age: 81 Year
  Sex: Male

DRUGS (4)
  1. CYCLOPHOSPHAMIDE [Suspect]
     Active Substance: CYCLOPHOSPHAMIDE
     Indication: Marginal zone lymphoma
     Dosage: C1J1
     Route: 042
     Dates: start: 20240110, end: 20240110
  2. RITUXIMAB [Suspect]
     Active Substance: RITUXIMAB
     Indication: Marginal zone lymphoma
     Dosage: C1J1
     Route: 042
     Dates: start: 20240110, end: 20240110
  3. MESNA [Suspect]
     Active Substance: MESNA
     Indication: Prophylaxis
     Dosage: C1J1
     Route: 042
     Dates: start: 20240110, end: 20240110
  4. ETOPOSIDE [Suspect]
     Active Substance: ETOPOSIDE
     Indication: Marginal zone lymphoma
     Dosage: UNSPECIFIED
     Route: 042
     Dates: start: 20240110, end: 20240110

REACTIONS (1)
  - Acute pulmonary oedema [Unknown]

NARRATIVE: CASE EVENT DATE: 20240114
